FAERS Safety Report 24743837 (Version 2)
Quarter: 2024Q4

REPORT INFORMATION
  Report Type: Report from Study
  Country: BE (occurrence: BE)
  Receive Date: 20241217
  Receipt Date: 20241219
  Transmission Date: 20250114
  Serious: Yes (Death, Hospitalization)
  Sender: ABBVIE
  Company Number: BE-ABBVIE-6049675

PATIENT
  Age: 84 Year
  Sex: Male

DRUGS (6)
  1. FOSCARBIDOPA\FOSLEVODOPA [Suspect]
     Active Substance: FOSCARBIDOPA\FOSLEVODOPA
     Indication: Parkinson^s disease
     Dosage: LAST ADMIN DATE: OCT 2024
     Route: 058
     Dates: start: 20241007
  2. FOSCARBIDOPA\FOSLEVODOPA [Suspect]
     Active Substance: FOSCARBIDOPA\FOSLEVODOPA
     Dosage: REMAINS AT 24
     Route: 058
     Dates: start: 20240829, end: 20241010
  3. FOSCARBIDOPA\FOSLEVODOPA [Suspect]
     Active Substance: FOSCARBIDOPA\FOSLEVODOPA
     Dosage: LOADING DOSE: 1.20 ML, BASE INFUSION RATE: 0.84 ML/H, HIGH INFUSION RATE: 0.84 ML/H, LOW INFUSION...
     Route: 058
     Dates: start: 20241010, end: 20241120
  4. FOSCARBIDOPA\FOSLEVODOPA [Suspect]
     Active Substance: FOSCARBIDOPA\FOSLEVODOPA
     Dosage: LOADING DOSE: 12.00 ML, BASE INFUSION RATE: 8.00 ML/H, HIGH INFUSION RATE: 8.00 ML/H, LOW INFUSIO...
     Route: 058
     Dates: start: 20241120, end: 20241125
  5. FOSCARBIDOPA\FOSLEVODOPA [Suspect]
     Active Substance: FOSCARBIDOPA\FOSLEVODOPA
     Dosage: LOADING DOSE: 0.12 ML, BASE INFUSION RATE: 0.70 ML/H, HIGH INFUSION RATE: 0.70 ML/H, LOW INFUSION...
     Route: 058
     Dates: start: 20241125, end: 20241127
  6. FOSCARBIDOPA\FOSLEVODOPA [Suspect]
     Active Substance: FOSCARBIDOPA\FOSLEVODOPA
     Dosage: LOADING DOSE: 1.20 ML, BASE INFUSION RATE: 0.70 ML/H, HIGH INFUSION RATE: 0.70 ML/H, LOW INFUSION...
     Route: 058
     Dates: start: 20241127

REACTIONS (1)
  - Cerebral haemorrhage [Fatal]

NARRATIVE: CASE EVENT DATE: 20241213
